FAERS Safety Report 20910739 (Version 1)
Quarter: 2022Q2

REPORT INFORMATION
  Report Type: Spontaneous
  Country: US (occurrence: US)
  Receive Date: 20220603
  Receipt Date: 20220603
  Transmission Date: 20220721
  Serious: Yes (Life-Threatening, Hospitalization)
  Sender: FDA-Public Use
  Company Number: US-Fresenius Medical Care Renal Therapies Group-FMC-2206-000787

PATIENT
  Age: 44 Year
  Sex: Female
  Weight: 71.4 kg

DRUGS (2)
  1. DELFLEX WITH DEXTROSE 2.5% LOW MAGNESIUM LOW CALCIUM [Suspect]
     Active Substance: CALCIUM CHLORIDE\DEXTROSE\MAGNESIUM CHLORIDE\SODIUM CHLORIDE\SODIUM LACTATE
     Indication: End stage renal disease
     Dosage: AT 2500 ML FOR 4 EXCHANGES WITH NO LAST FILL AND NO DAYTIME EXCHANGE, SINCE AN UNKNOWN DATE
     Route: 033
  2. DELFLEX WITH DEXTROSE 4.25% LOW MAGNESIUM LOW CALCIUM [Suspect]
     Active Substance: CALCIUM CHLORIDE\DEXTROSE\MAGNESIUM CHLORIDE\SODIUM CHLORIDE\SODIUM LACTATE
     Indication: End stage renal disease
     Dosage: AT 2500 ML FOR 4 EXCHANGES WITH NO LAST FILL AND NO DAYTIME EXCHANGE, SINCE AN UNKNOWN DATE
     Route: 033

REACTIONS (1)
  - Dyspnoea [Unknown]
